FAERS Safety Report 14402986 (Version 6)
Quarter: 2020Q1

REPORT INFORMATION
  Report Type: Report from Study
  Country: BE (occurrence: BE)
  Receive Date: 20180117
  Receipt Date: 20200127
  Transmission Date: 20200409
  Serious: Yes (Hospitalization, Other)
  Sender: FDA-Public Use
  Company Number: BE-PFIZER INC-2018014933

PATIENT
  Age: 81 Year
  Sex: Female
  Weight: 66 kg

DRUGS (13)
  1. BEVACIZUMAB. [Suspect]
     Active Substance: BEVACIZUMAB
     Dosage: 795 MG, EVERY 3 WEEKS
     Route: 042
     Dates: start: 20170824
  2. BEVACIZUMAB. [Suspect]
     Active Substance: BEVACIZUMAB
     Indication: OVARIAN CANCER
     Dosage: 990 MG, EVERY 3 WEEKS
     Route: 042
     Dates: start: 20170601
  3. PARACETAMOL [Concomitant]
     Active Substance: ACETAMINOPHEN
     Indication: PROPHYLAXIS
     Dosage: UNK
     Route: 065
     Dates: start: 20170529
  4. SIMVASTATIN. [Concomitant]
     Active Substance: SIMVASTATIN
  5. BEVACIZUMAB. [Suspect]
     Active Substance: BEVACIZUMAB
     Dosage: 780 MG, EVERY 3 WEEKS
     Route: 042
     Dates: start: 20180503
  6. CAELYX [Suspect]
     Active Substance: DOXORUBICIN HYDROCHLORIDE
     Dosage: 30 MG, EVERY 3 WEEKS
     Route: 042
     Dates: start: 20180627
  7. PROGYNOVA [ESTRADIOL VALERATE] [Concomitant]
     Active Substance: ESTRADIOL VALERATE
     Dosage: UNK
     Route: 065
     Dates: start: 20170602
  8. BEVACIZUMAB. [Suspect]
     Active Substance: BEVACIZUMAB
     Dosage: 780 MG, EVERY 3 WEEKS
     Route: 042
     Dates: start: 20170713
  9. YONDELIS [Concomitant]
     Active Substance: TRABECTEDIN
  10. PACLITAXEL. [Suspect]
     Active Substance: PACLITAXEL
     Indication: OVARIAN CANCER
     Dosage: 80 MG/M2, EVERY 3 WEEKS
     Route: 042
     Dates: start: 20170601, end: 20171102
  11. PANTOMED [PANTOPRAZOLE SODIUM SESQUIHYDRATE] [Concomitant]
     Active Substance: PANTOPRAZOLE SODIUM
     Indication: PROPHYLAXIS
  12. CARBOPLATIN. [Suspect]
     Active Substance: CARBOPLATIN
     Indication: OVARIAN CANCER
     Dosage: 80 MG/M2 (2 AUC), EVERY 3 WEEKS
     Route: 042
     Dates: start: 20170601, end: 20171102
  13. TRADONAL [Concomitant]
     Active Substance: TRAMADOL HYDROCHLORIDE
     Indication: PROPHYLAXIS
     Dosage: UNK
     Route: 065
     Dates: start: 20170606

REACTIONS (8)
  - Febrile neutropenia [Not Recovered/Not Resolved]
  - Vasculitis [Not Recovered/Not Resolved]
  - Neutrophil count decreased [Recovered/Resolved]
  - Venous thrombosis limb [Not Recovered/Not Resolved]
  - Platelet count decreased [Recovered/Resolved]
  - Epistaxis [Recovered/Resolved]
  - Oedema peripheral [Recovered/Resolved]
  - Hypertension [Not Recovered/Not Resolved]

NARRATIVE: CASE EVENT DATE: 20170629
